FAERS Safety Report 22537147 (Version 1)
Quarter: 2023Q2

REPORT INFORMATION
  Report Type: Spontaneous
  Country: JP (occurrence: JP)
  Receive Date: 20230608
  Receipt Date: 20230608
  Transmission Date: 20230721
  Serious: Yes (Other)
  Sender: FDA-Public Use
  Company Number: JP-JNJFOC-20230605035

PATIENT
  Age: 15 Year
  Sex: Male

DRUGS (11)
  1. TOPIRAMATE [Suspect]
     Active Substance: TOPIRAMATE
     Indication: Product used for unknown indication
     Dosage: ROUTE: GASTRIC USE
     Route: 065
  2. AMBROXOL HYDROCHLORIDE [Concomitant]
     Active Substance: AMBROXOL HYDROCHLORIDE
  3. CARBOCYSTEINE [Concomitant]
     Active Substance: CARBOCYSTEINE
  4. MAGNESIUM OXIDE [Concomitant]
     Active Substance: MAGNESIUM OXIDE
  5. MIYA-BM [Concomitant]
     Active Substance: CLOSTRIDIUM BUTYRICUM SPORES STRAIN M-55
  6. CERCINE [Concomitant]
     Active Substance: DIAZEPAM
  7. PHENOBARBITAL [Concomitant]
     Active Substance: PHENOBARBITAL
     Dosage: PHENOBAL [PHENOBARBITAL SODIUM] (PHENOBARBITAL SODIUM) POWDER (EXCEPT [DPO]) ; UNKNOWN
  8. ZONISAMIDE [Concomitant]
     Active Substance: ZONISAMIDE
     Dosage: EXCEGRAN (ZONISAMIDE) POWDER (EXCEPT [DPO]) ; UNKNOWN
  9. DANTRIUM [Concomitant]
     Active Substance: DANTROLENE SODIUM
  10. ARTEMETHER [Concomitant]
     Active Substance: ARTEMETHER
  11. ALLEGRA ALLERGY [Concomitant]
     Active Substance: FEXOFENADINE HYDROCHLORIDE

REACTIONS (10)
  - Seizure [Unknown]
  - Gelastic seizure [Unknown]
  - Productive cough [Unknown]
  - Decubitus ulcer [Unknown]
  - Cutaneous symptom [Unknown]
  - Scoliosis [Unknown]
  - Muscle tightness [Unknown]
  - Somnolence [Unknown]
  - Rash [Unknown]
  - Off label use [Unknown]
